FAERS Safety Report 4305935-6 (Version None)
Quarter: 2004Q1

REPORT INFORMATION
  Report Type: 
  Country: None (occurrence: None)
  Receive Date: 20040226
  Receipt Date: 20030924
  Transmission Date: 20041129
  Serious: Yes (Hospitalization, Other)
  Sender: FDA-Public Use
  Company Number: KII-2003-0006982

PATIENT
  Age: 9 Month
  Sex: Female

DRUGS (1)
  1. MORPHINE [Suspect]
     Indication: DRUG USE FOR UNKNOWN INDICATION

REACTIONS (10)
  - ACCIDENTAL EXPOSURE [None]
  - AGITATION [None]
  - BLOOD PRESSURE DIASTOLIC DECREASED [None]
  - BODY TEMPERATURE DECREASED [None]
  - COORDINATION ABNORMAL [None]
  - FALL [None]
  - MENTAL STATUS CHANGES [None]
  - MIOSIS [None]
  - RESPIRATORY RATE DECREASED [None]
  - SOMNOLENCE [None]
